FAERS Safety Report 5016407-8 (Version None)
Quarter: 2006Q2

REPORT INFORMATION
  Report Type: 
  Country: None (occurrence: None)
  Receive Date: 20060531
  Receipt Date: 20060531
  Transmission Date: 20061013
  Serious: Yes (Other)
  Sender: FDA-Public Use
  Company Number: None

PATIENT
  Age: 43 Year
  Sex: Female
  Weight: 106.5953 kg

DRUGS (6)
  1. LEVAQUIN [Suspect]
     Indication: PELVIC INFECTION
     Dosage: 500 MG   1/DAY   PO
     Route: 048
     Dates: start: 20050729, end: 20050731
  2. ACIPHEX [Concomitant]
  3. IMITREX [Concomitant]
  4. LOTENSIN [Concomitant]
  5. LIPITOR [Concomitant]
  6. FLAGYL [Concomitant]

REACTIONS (19)
  - ANOREXIA [None]
  - ARTHRALGIA [None]
  - BACK PAIN [None]
  - BURNING SENSATION [None]
  - DEPERSONALISATION [None]
  - DIZZINESS [None]
  - EYE PAIN [None]
  - FEELING ABNORMAL [None]
  - HYPERSENSITIVITY [None]
  - HYPOAESTHESIA [None]
  - ILL-DEFINED DISORDER [None]
  - INSOMNIA [None]
  - INTRACRANIAL PRESSURE INCREASED [None]
  - NAUSEA [None]
  - NERVOUS SYSTEM DISORDER [None]
  - NIGHTMARE [None]
  - PAIN IN EXTREMITY [None]
  - PARAESTHESIA [None]
  - TINNITUS [None]
